FAERS Safety Report 10553149 (Version 5)
Quarter: 2015Q3

REPORT INFORMATION
  Report Type: Spontaneous
  Country: AR (occurrence: AR)
  Receive Date: 20141030
  Receipt Date: 20150828
  Transmission Date: 20151125
  Serious: Yes (Other)
  Sender: FDA-Public Use
  Company Number: AR-AMGEN-ARGSP2014083487

PATIENT
  Age: 65 Year
  Sex: Male

DRUGS (4)
  1. ENBREL [Suspect]
     Active Substance: ETANERCEPT
     Dosage: 50 MG, WEEKLY
     Route: 065
     Dates: start: 20140115, end: 201408
  2. ENBREL [Suspect]
     Active Substance: ETANERCEPT
     Dosage: 50 MG, WEEKLY
     Route: 065
     Dates: start: 20141110
  3. ENBREL [Suspect]
     Active Substance: ETANERCEPT
     Dosage: 50 MG, EVERY 15 OR 20 DAYS
     Route: 065
  4. ENBREL [Suspect]
     Active Substance: ETANERCEPT
     Indication: PSORIATIC ARTHROPATHY
     Dosage: 50 MG, WEEKLY
     Route: 065
     Dates: start: 20140115

REACTIONS (6)
  - Condition aggravated [Unknown]
  - Pain [Not Recovered/Not Resolved]
  - Psoriatic arthropathy [Unknown]
  - Gait disturbance [Unknown]
  - Psoriasis [Recovering/Resolving]
  - Intraocular melanoma [Not Recovered/Not Resolved]

NARRATIVE: CASE EVENT DATE: 2014
